FAERS Safety Report 25945078 (Version 1)
Quarter: 2025Q4

REPORT INFORMATION
  Report Type: Spontaneous
  Country: US (occurrence: US)
  Receive Date: 20251021
  Receipt Date: 20251021
  Transmission Date: 20260118
  Serious: No
  Sender: Phathom Pharmaceuticals
  Company Number: US-PHATHOM PHARMACEUTICALS INC.-2025PHT01984

PATIENT
  Age: 68 Year
  Sex: Male
  Weight: 85.8 kg

DRUGS (19)
  1. VOQUEZNA [Suspect]
     Active Substance: VONOPRAZAN FUMARATE
     Indication: Gastrooesophageal reflux disease
     Dosage: 20 MG, 1X/DAY
     Route: 048
     Dates: start: 20250501, end: 20250507
  2. MOMETASONE FUROATE [Concomitant]
     Active Substance: MOMETASONE FUROATE
  3. AZITHROMYCIN [Concomitant]
     Active Substance: AZITHROMYCIN
  4. VITAMIN D3 [Concomitant]
     Active Substance: CHOLECALCIFEROL
  5. NEPHRON FA [Concomitant]
     Active Substance: ASCORBIC ACID\BIOTIN\COBALAMIN\FOLIC ACID\IRON\NIACINAMIDE\PANTOTHENIC ACID\PYRIDOXINE HYDROCHLORIDE
  6. AZELASTINE [Concomitant]
     Active Substance: AZELASTINE
  7. CRESEMBA [Concomitant]
     Active Substance: ISAVUCONAZONIUM SULFATE
  8. ELIQUIS [Concomitant]
     Active Substance: APIXABAN
  9. LASIX [Concomitant]
     Active Substance: FUROSEMIDE
  10. PREDNISONE [Concomitant]
     Active Substance: PREDNISONE
  11. VITAMINS [Concomitant]
     Active Substance: VITAMINS
  12. ADEMPAS [Concomitant]
     Active Substance: RIOCIGUAT
  13. PREVYMIS [Concomitant]
     Active Substance: LETERMOVIR
  14. ENVARSUS XR [Concomitant]
     Active Substance: TACROLIMUS
  15. CELLCEPT [Concomitant]
     Active Substance: MYCOPHENOLATE MOFETIL
  16. SINGULAIR [Concomitant]
     Active Substance: MONTELUKAST SODIUM
  17. PROPRANOLOL [Concomitant]
     Active Substance: PROPRANOLOL HYDROCHLORIDE
  18. CALCIUM [Concomitant]
     Active Substance: CALCIUM
  19. MAGNESIUM [Concomitant]
     Active Substance: MAGNESIUM

REACTIONS (3)
  - Weight decreased [Unknown]
  - Decreased appetite [Unknown]
  - Drug ineffective [Recovered/Resolved]

NARRATIVE: CASE EVENT DATE: 20250501
